FAERS Safety Report 24777908 (Version 2)
Quarter: 2025Q1

REPORT INFORMATION
  Report Type: Spontaneous
  Country: US (occurrence: US)
  Receive Date: 20241226
  Receipt Date: 20250205
  Transmission Date: 20250409
  Serious: No
  Sender: PFIZER
  Company Number: US-Novartis Pharma AG-NVSC2024US151110

PATIENT
  Sex: Female

DRUGS (50)
  1. IBRANCE [Suspect]
     Active Substance: PALBOCICLIB
     Route: 065
     Dates: start: 20240206
  2. ZOMETA [Suspect]
     Active Substance: ZOLEDRONIC ACID
  3. ZOLEDRONIC ACID [Suspect]
     Active Substance: ZOLEDRONIC ACID
  4. METHIMAZOLE [Concomitant]
     Active Substance: METHIMAZOLE
  5. METHIMAZOLE [Concomitant]
     Active Substance: METHIMAZOLE
  6. BACTRIM DS [Concomitant]
     Active Substance: SULFAMETHOXAZOLE\TRIMETHOPRIM
  7. ONDANSETRON HYDROCHLORIDE [Concomitant]
     Active Substance: ONDANSETRON HYDROCHLORIDE
  8. ONDANSETRON HYDROCHLORIDE [Concomitant]
     Active Substance: ONDANSETRON HYDROCHLORIDE
  9. ONDANSETRON HYDROCHLORIDE [Concomitant]
     Active Substance: ONDANSETRON HYDROCHLORIDE
  10. ONDANSETRON HYDROCHLORIDE [Concomitant]
     Active Substance: ONDANSETRON HYDROCHLORIDE
  11. VOLTAREN [Concomitant]
     Active Substance: DICLOFENAC SODIUM
     Indication: Arthritis
  12. VOLTAREN [Concomitant]
     Active Substance: DICLOFENAC SODIUM
  13. VOLTAREN [Concomitant]
     Active Substance: DICLOFENAC SODIUM
  14. VOLTAREN [Concomitant]
     Active Substance: DICLOFENAC SODIUM
  15. DICLOFENAC DIETHYLAMINE [Concomitant]
     Active Substance: DICLOFENAC DIETHYLAMINE
  16. DILAUDID [Concomitant]
     Active Substance: HYDROMORPHONE HYDROCHLORIDE
  17. DILAUDID [Concomitant]
     Active Substance: HYDROMORPHONE HYDROCHLORIDE
  18. DILAUDID [Concomitant]
     Active Substance: HYDROMORPHONE HYDROCHLORIDE
  19. DILAUDID [Concomitant]
     Active Substance: HYDROMORPHONE HYDROCHLORIDE
  20. XGEVA [Concomitant]
     Active Substance: DENOSUMAB
  21. SYNTHROID [Concomitant]
     Active Substance: LEVOTHYROXINE SODIUM
  22. FEMARA [Concomitant]
     Active Substance: LETROZOLE
  23. NEXIUM [Concomitant]
     Active Substance: ESOMEPRAZOLE MAGNESIUM
  24. NEXIUM I.V. [Concomitant]
     Active Substance: ESOMEPRAZOLE SODIUM
  25. LEXAPRO [Concomitant]
     Active Substance: ESCITALOPRAM OXALATE
  26. LEXAPRO [Concomitant]
     Active Substance: ESCITALOPRAM OXALATE
  27. LEXAPRO [Concomitant]
     Active Substance: ESCITALOPRAM OXALATE
  28. FERROUS SULFATE [Concomitant]
     Active Substance: FERROUS SULFATE
  29. FERROUS SULFATE [Concomitant]
     Active Substance: FERROUS SULFATE
  30. FERROUS SULFATE [Concomitant]
     Active Substance: FERROUS SULFATE
  31. FERROUS SULFATE [Concomitant]
     Active Substance: FERROUS SULFATE
  32. FERROUS SULFATE [Concomitant]
     Active Substance: FERROUS SULFATE
  33. FERROUS SULFATE [Concomitant]
     Active Substance: FERROUS SULFATE
  34. HERBALS\TURMERIC [Concomitant]
     Active Substance: HERBALS\TURMERIC
  35. HERBALS\TURMERIC [Concomitant]
     Active Substance: HERBALS\TURMERIC
  36. FISH OIL [Concomitant]
     Active Substance: FISH OIL
  37. FISH OIL [Concomitant]
     Active Substance: FISH OIL
  38. FISH OIL [COD-LIVER OIL] [Concomitant]
  39. MULTI VITAMIN [ARGININE HYDROCHLORIDE;ASCORBIC ACID;CALCIUM;CALCIUM PA [Concomitant]
  40. MULTI VITAMIN [ASCORBIC ACID;FOLIC ACID;NICOTINIC ACID;PYRIDOXINE HYDR [Concomitant]
  41. MAGNESIUM [Concomitant]
     Active Substance: MAGNESIUM
  42. MAGNESIUM OXIDE [Concomitant]
     Active Substance: MAGNESIUM OXIDE
  43. MAGNESIUM OXIDE [Concomitant]
     Active Substance: MAGNESIUM OXIDE
  44. MAGNESIUM [Concomitant]
     Active Substance: MAGNESIUM
  45. ZOCOR [Concomitant]
     Active Substance: SIMVASTATIN
  46. ZOCOR [Concomitant]
     Active Substance: SIMVASTATIN
  47. ZOCOR [Concomitant]
     Active Substance: SIMVASTATIN
  48. ZOCOR [Concomitant]
     Active Substance: SIMVASTATIN
  49. ZOCOR [Concomitant]
     Active Substance: SIMVASTATIN
  50. TYLENOL [Concomitant]
     Active Substance: ACETAMINOPHEN

REACTIONS (5)
  - Back pain [Unknown]
  - Skin disorder [Unknown]
  - Weight decreased [Unknown]
  - Laboratory test abnormal [Unknown]
  - Full blood count decreased [Unknown]
